FAERS Safety Report 14790869 (Version 1)
Quarter: 2018Q2

REPORT INFORMATION
  Report Type: Report from Study
  Country: CA (occurrence: CA)
  Receive Date: 20180423
  Receipt Date: 20180423
  Transmission Date: 20180711
  Serious: Yes (Other)
  Sender: FDA-Public Use
  Company Number: CA-JNJFOC-20180312800

PATIENT
  Sex: Male

DRUGS (1)
  1. STELARA [Suspect]
     Active Substance: USTEKINUMAB
     Indication: CROHN^S DISEASE
     Dosage: STRENGTH = 90 MG
     Route: 058
     Dates: start: 20170518

REACTIONS (6)
  - Syringe issue [Unknown]
  - Postoperative abscess [Not Recovered/Not Resolved]
  - Crohn^s disease [Recovering/Resolving]
  - Product leakage [Unknown]
  - Post procedural fistula [Unknown]
  - Surgery [Unknown]
